FAERS Safety Report 13981153 (Version 1)
Quarter: 2017Q3

REPORT INFORMATION
  Report Type: Spontaneous
  Country: US (occurrence: US)
  Receive Date: 20170915
  Receipt Date: 20170915
  Transmission Date: 20171128
  Serious: Yes (Hospitalization)
  Sender: FDA-Public Use
  Company Number: None

PATIENT
  Sex: Male
  Weight: 85.05 kg

DRUGS (25)
  1. FISH OIL [Concomitant]
     Active Substance: FISH OIL
  2. MAGNESIUM [Concomitant]
     Active Substance: MAGNESIUM
  3. BACLOFEN. [Concomitant]
     Active Substance: BACLOFEN
  4. VERAPAMIL [Concomitant]
     Active Substance: VERAPAMIL HYDROCHLORIDE
  5. PROBIOTIC LIVE BACTERIA 10 STRAINS [Concomitant]
  6. VITAMIN D3 [Concomitant]
     Active Substance: CHOLECALCIFEROL
  7. VITAMIN A AND D [Concomitant]
     Active Substance: LANOLIN\PETROLATUM
  8. RED YEAST RICE EXTRACT [Concomitant]
  9. VIAGRA [Concomitant]
     Active Substance: SILDENAFIL CITRATE
  10. DICLOPHENAC SODIUM/MISOP [Concomitant]
  11. TRAZODONE [Concomitant]
     Active Substance: TRAZODONE HYDROCHLORIDE
  12. LUTEIN [Concomitant]
     Active Substance: LUTEIN
  13. ESOMEPRA [Concomitant]
     Active Substance: ESOMEPRAZOLE
  14. COENZYME Q10 [Concomitant]
     Active Substance: UBIDECARENONE
  15. FEXOFENADINE HCL [Concomitant]
     Active Substance: FEXOFENADINE HYDROCHLORIDE
  16. SAW PALMETTO [Concomitant]
     Active Substance: HERBALS\SAW PALMETTO
  17. TYLENOL ARTHRITIS PAIN [Concomitant]
     Active Substance: ACETAMINOPHEN
  18. VITAMIN C [Concomitant]
     Active Substance: ASCORBIC ACID
  19. AZELASTINE HCL 205.5MCG SPRAY/PUMP [Suspect]
     Active Substance: AZELASTINE HYDROCHLORIDE
     Indication: NASAL CONGESTION
     Dosage: ?          OTHER ROUTE:ONE SPRAY INTO EACH NOSTRIL?
     Route: 045
     Dates: start: 20170601, end: 20170815
  20. ZOLPIDEM TARTRATE. [Concomitant]
     Active Substance: ZOLPIDEM TARTRATE
  21. CENTRUM SILVER [Concomitant]
     Active Substance: MINERALS\VITAMINS
  22. CALCIUM CABONATE [Concomitant]
  23. L-LYSINE [Concomitant]
     Active Substance: LYSINE
  24. ALFLUZOSIN HCL [Concomitant]
  25. PRESERVISION AREDS [Concomitant]
     Active Substance: MINERALS\VITAMINS

REACTIONS (1)
  - Dyspnoea [None]

NARRATIVE: CASE EVENT DATE: 20170715
